FAERS Safety Report 10776807 (Version 1)
Quarter: 2015Q1

REPORT INFORMATION
  Report Type: Spontaneous
  Country: US (occurrence: None)
  Receive Date: 20150205
  Receipt Date: 20150205
  Transmission Date: 20150721
  Serious: No
  Sender: FDA-Public Use
  Company Number: None

PATIENT
  Sex: Female

DRUGS (1)
  1. WARTSTICK 40% SALICYLIC ACID [Suspect]
     Active Substance: SALICYLIC ACID
     Indication: DRY SKIN PROPHYLAXIS
     Dosage: OTC, APPLIED TO A SURFACE USUALLY THE SKIN
     Dates: start: 20150204, end: 20150204

REACTIONS (3)
  - Application site pain [None]
  - Accidental exposure to product [None]
  - Oral discomfort [None]

NARRATIVE: CASE EVENT DATE: 20150204
